FAERS Safety Report 6614108-3 (Version None)
Quarter: 2010Q1

REPORT INFORMATION
  Report Type: 
  Country: None (occurrence: None)
  Receive Date: 20100304
  Receipt Date: 20100223
  Transmission Date: 20100710
  Serious: Yes (Other)
  Sender: FDA-Public Use
  Company Number: JP-JNJFOC-20091003968

PATIENT
  Sex: Female
  Weight: 44 kg

DRUGS (8)
  1. DOXORUBICIN HCL [Suspect]
     Indication: MALIGNANT PERITONEAL NEOPLASM
     Route: 042
  2. DOXORUBICIN HCL [Suspect]
     Route: 042
  3. VITAMEDIN [Concomitant]
     Indication: PROPHYLAXIS
     Route: 048
  4. HEPARIN [Concomitant]
     Indication: PROPHYLAXIS
     Route: 061
  5. SODIUM GUALENATE [Concomitant]
     Indication: PROPHYLAXIS
     Route: 002
  6. DECADRON [Concomitant]
     Indication: PROPHYLAXIS
     Route: 048
  7. DECADRON [Concomitant]
     Route: 048
  8. KENALOG [Concomitant]
     Indication: DRUG USE FOR UNKNOWN INDICATION
     Route: 061

REACTIONS (1)
  - LUNG DISORDER [None]
